FAERS Safety Report 13295930 (Version 2)
Quarter: 2017Q1

REPORT INFORMATION
  Report Type: Report from Study
  Country: US (occurrence: US)
  Receive Date: 20170303
  Receipt Date: 20170324
  Transmission Date: 20170428
  Serious: Yes (Other)
  Sender: FDA-Public Use
  Company Number: US-JAZZ-2017-US-001850

PATIENT
  Sex: Female

DRUGS (19)
  1. NABUMETONE. [Concomitant]
     Active Substance: NABUMETONE
  2. IBUPROFEN                          /00109205/ [Concomitant]
     Active Substance: IBUPROFEN
  3. RESTASIS [Concomitant]
     Active Substance: CYCLOSPORINE
  4. XYREM [Suspect]
     Active Substance: SODIUM OXYBATE
     Dosage: 4 G, QD
     Route: 048
     Dates: start: 201508
  5. COSOPT PF [Concomitant]
     Active Substance: DORZOLAMIDE HYDROCHLORIDE\TIMOLOL MALEATE
  6. LUMIGAN [Concomitant]
     Active Substance: BIMATOPROST
  7. XYREM [Suspect]
     Active Substance: SODIUM OXYBATE
     Indication: SOMNOLENCE
     Dosage: 2.25 G, BID
     Route: 048
     Dates: start: 201402, end: 2014
  8. TOPROL XL [Concomitant]
     Active Substance: METOPROLOL SUCCINATE
  9. VITAMIN B COMPLEX [Concomitant]
     Active Substance: CYANOCOBALAMIN\DEXPANTHENOL\NIACINAMIDE\PYRIDOXINE HYDROCHLORIDE\RIBOFLAVIN 5^-PHOSPHATE SODIUM\THIAMINE HYDROCHLORIDE\VITAMIN B COMPLEX
  10. VITAMIN C [Concomitant]
     Active Substance: ASCORBIC ACID
  11. VITAMIN D                          /00107901/ [Concomitant]
     Active Substance: ERGOCALCIFEROL
  12. PRILOSEC [Concomitant]
     Active Substance: OMEPRAZOLE MAGNESIUM
  13. TOPAMAX [Concomitant]
     Active Substance: TOPIRAMATE
  14. TRAMADOL HCL [Concomitant]
     Active Substance: TRAMADOL HYDROCHLORIDE
  15. FISH OIL CONCENTRATE [Concomitant]
     Active Substance: FISH OIL
  16. XYREM [Suspect]
     Active Substance: SODIUM OXYBATE
     Dosage: DOSE ADJUSTMENT
     Route: 048
     Dates: start: 201404, end: 2015
  17. MOBIC [Concomitant]
     Active Substance: MELOXICAM
  18. CELEBREX [Concomitant]
     Active Substance: CELECOXIB
  19. PROVIGIL [Concomitant]
     Active Substance: MODAFINIL

REACTIONS (2)
  - Influenza [Unknown]
  - Meniscus injury [Unknown]
